FAERS Safety Report 13757433 (Version 1)
Quarter: 2017Q3

REPORT INFORMATION
  Report Type: Spontaneous
  Country: US (occurrence: US)
  Receive Date: 20170716
  Receipt Date: 20170716
  Transmission Date: 20171127
  Serious: No
  Sender: FDA-Public Use
  Company Number: GXBR2016US003091

PATIENT
  Sex: Male

DRUGS (1)
  1. SPIRONOLACTONE TABLETS USP [Suspect]
     Active Substance: SPIRONOLACTONE
     Indication: PRODUCT USED FOR UNKNOWN INDICATION
     Dosage: 25 MG, UNK
     Route: 065

REACTIONS (1)
  - Chest pain [Recovered/Resolved]
